FAERS Safety Report 21795763 (Version 1)
Quarter: 2022Q4

REPORT INFORMATION
  Report Type: Spontaneous
  Country: ZA (occurrence: ZA)
  Receive Date: 20221229
  Receipt Date: 20221229
  Transmission Date: 20230113
  Serious: Yes (Other)
  Sender: FDA-Public Use
  Company Number: ZA-FreseniusKabi-FK202218473

PATIENT
  Age: 22 Year
  Sex: Female

DRUGS (1)
  1. FENTANYL [Suspect]
     Active Substance: FENTANYL
     Indication: Induction of anaesthesia
     Dosage: GENTLE TITRATION OF HIGH-DOSE FENTANYL

REACTIONS (1)
  - Haemodynamic instability [Unknown]
